FAERS Safety Report 13138715 (Version 1)
Quarter: 2017Q1

REPORT INFORMATION
  Report Type: Spontaneous
  Country: US (occurrence: US)
  Receive Date: 20170123
  Receipt Date: 20170123
  Transmission Date: 20170428
  Serious: No
  Sender: FDA-Public Use
  Company Number: US-UNITED THERAPEUTICS-UNT-2016-003592

PATIENT
  Age: 70 Year
  Sex: Female
  Weight: 63.49 kg

DRUGS (2)
  1. LETAIRIS [Suspect]
     Active Substance: AMBRISENTAN
     Indication: PRODUCT USED FOR UNKNOWN INDICATION
     Dosage: 5 MG, QD
     Route: 048
     Dates: start: 20160126
  2. TYVASO [Suspect]
     Active Substance: TREPROSTINIL
     Indication: PULMONARY ARTERIAL HYPERTENSION
     Dosage: 12-54 MICROGRAMS, QID
     Dates: start: 20140707

REACTIONS (6)
  - Musculoskeletal chest pain [Unknown]
  - Dyspnoea [Unknown]
  - Back pain [Unknown]
  - Headache [Unknown]
  - Product use issue [Unknown]
  - Asthenia [Unknown]

NARRATIVE: CASE EVENT DATE: 201602
